FAERS Safety Report 5342045-3 (Version None)
Quarter: 2007Q2

REPORT INFORMATION
  Report Type: 
  Country: None (occurrence: None)
  Receive Date: 20070601
  Receipt Date: 20070523
  Transmission Date: 20071010
  Serious: Yes (Death, Other)
  Sender: FDA-Public Use
  Company Number: US-PURDUE-USA_2006_0024388

PATIENT
  Age: 49 Year
  Sex: Female

DRUGS (4)
  1. CAFFEINE [Suspect]
     Indication: DRUG USE FOR UNKNOWN INDICATION
  2. OXYCODONE 2.5/APAP 500 [Suspect]
     Indication: DRUG ABUSER
     Dosage: UNK, UNK
  3. ETHANOL [Suspect]
     Indication: ALCOHOL USE
     Dosage: UNK, UNK
  4. NICOTINE [Suspect]
     Indication: TOBACCO USER
     Dosage: UNK, UNK

REACTIONS (5)
  - LOSS OF CONSCIOUSNESS [None]
  - MULTIPLE DRUG OVERDOSE ACCIDENTAL [None]
  - RESPIRATORY ARREST [None]
  - SUBSTANCE ABUSE [None]
  - VICTIM OF HOMICIDE [None]
